FAERS Safety Report 8890494 (Version 3)
Quarter: 2013Q1

REPORT INFORMATION
  Report Type: Report from Study
  Country: US (occurrence: US)
  Receive Date: 20121107
  Receipt Date: 20130219
  Transmission Date: 20140127
  Serious: Yes (Hospitalization)
  Sender: FDA-Public Use
  Company Number: US-009507513-1211USA001221

PATIENT
  Age: 67 Year
  Sex: Male
  Weight: 72.38 kg

DRUGS (15)
  1. SIMVASTATIN [Suspect]
     Indication: BLOOD CHOLESTEROL INCREASED
     Dosage: 80 MG, QD
     Route: 048
     Dates: start: 1999, end: 20121005
  2. STUDY DRUG (UNSPECIFIED) [Suspect]
     Indication: NON-SMALL CELL LUNG CANCER
     Dosage: 125 MG, QD, DAYS 1-21/28 CYCLE
     Route: 048
     Dates: start: 20120911, end: 20121002
  3. MEGACE [Concomitant]
     Indication: INCREASED APPETITE
     Dosage: UNK
     Dates: start: 201209
  4. PERCOCET [Concomitant]
     Indication: PAIN
     Dosage: UNK UNK, PRN
     Dates: start: 2000
  5. AMBIEN [Concomitant]
     Indication: SLEEP DISORDER
     Dosage: UNK
     Dates: start: 2011
  6. TEMAZEPAM [Concomitant]
     Dosage: UNK
     Dates: start: 2011
  7. MORPHINE SULFATE [Concomitant]
     Dosage: UNK
     Dates: start: 2000
  8. ATIVAN [Concomitant]
     Dosage: UNK
     Dates: start: 201208
  9. ZANTAC [Concomitant]
     Dosage: UNK
     Dates: start: 201201
  10. ASPIRIN [Concomitant]
     Dosage: UNK
     Dates: start: 1999
  11. CYANOCOBALAMIN [Concomitant]
     Indication: SUPPLEMENTATION THERAPY
     Dosage: UNK
     Dates: start: 201207
  12. SENNOSIDES [Concomitant]
     Dosage: UNK
     Dates: start: 2003
  13. NOVOLOG [Concomitant]
  14. LANTUS [Concomitant]
  15. APIDRA [Concomitant]

REACTIONS (9)
  - Renal failure acute [Recovered/Resolved]
  - Platelet count decreased [Recovered/Resolved]
  - Muscular weakness [Recovered/Resolved]
  - Alanine aminotransferase increased [Recovered/Resolved]
  - Aspartate aminotransferase increased [Recovered/Resolved]
  - Blood creatinine increased [Recovered/Resolved]
  - Neutrophil count decreased [Recovered/Resolved]
  - Blood creatine phosphokinase increased [Recovered/Resolved]
  - White blood cell count decreased [Recovered/Resolved]
